FAERS Safety Report 6326447-4 (Version None)
Quarter: 2009Q3

REPORT INFORMATION
  Report Type: 
  Country: None (occurrence: None)
  Receive Date: 20090820
  Receipt Date: 20090630
  Transmission Date: 20100115
  Serious: Yes (Other)
  Sender: FDA-Public Use
  Company Number: 001186

PATIENT
  Sex: Female

DRUGS (8)
  1. NEUPRO [Suspect]
     Indication: PARKINSON'S DISEASE
     Dosage: 4 MG QD TRANSDERMAL, (2 MG QD TRANSDERMAL, 6 MG, QD TRANSDERMAL), 4 MG QD, TRANSDERMAL
     Route: 062
     Dates: start: 20081201
  2. NEUPRO [Suspect]
     Indication: PARKINSON'S DISEASE
     Dosage: 4 MG QD TRANSDERMAL, (2 MG QD TRANSDERMAL, 6 MG, QD TRANSDERMAL), 4 MG QD, TRANSDERMAL
     Route: 062
     Dates: start: 20081216
  3. NEUPRO [Suspect]
     Indication: PARKINSON'S DISEASE
     Dosage: 4 MG QD TRANSDERMAL, (2 MG QD TRANSDERMAL, 6 MG, QD TRANSDERMAL), 4 MG QD, TRANSDERMAL
     Route: 062
     Dates: start: 20090301
  4. NEUPRO [Suspect]
     Indication: PARKINSON'S DISEASE
     Dosage: 4 MG QD TRANSDERMAL, (2 MG QD TRANSDERMAL, 6 MG, QD TRANSDERMAL), 4 MG QD, TRANSDERMAL
     Route: 062
     Dates: start: 20090401
  5. ANTIHISTAMINES [Concomitant]
  6. RASAGILINE [Concomitant]
  7. AERIUS [Concomitant]
  8. LEVOTHYROXINE [Concomitant]

REACTIONS (3)
  - APPLICATION SITE REACTION [None]
  - PHOTOSENSITIVITY REACTION [None]
  - SUNBURN [None]
